FAERS Safety Report 4403114-5 (Version None)
Quarter: 2004Q3

REPORT INFORMATION
  Report Type: 
  Country: None (occurrence: None)
  Receive Date: 20040721
  Receipt Date: 20040304
  Transmission Date: 20050211
  Serious: No
  Sender: FDA-Public Use
  Company Number: US-GLAXOSMITHKLINE-A0501231A

PATIENT
  Sex: Female

DRUGS (3)
  1. IMITREX [Suspect]
     Indication: MIGRAINE
     Dosage: 50MG AS REQUIRED
     Route: 048
  2. CHLORAZEPAM [Concomitant]
     Route: 065
  3. TRAZODONE HCL [Concomitant]
     Route: 065

REACTIONS (1)
  - RASH PRURITIC [None]
